FAERS Safety Report 8733627 (Version 4)
Quarter: 2012Q4

REPORT INFORMATION
  Report Type: 
  Country: AU (occurrence: AU)
  Receive Date: 20120821
  Receipt Date: 20121114
  Transmission Date: 20130627
  Serious: Yes (Hospitalization, Other)
  Sender: FDA-Public Use
  Company Number: PHHY2012AU070932

PATIENT
  Age: 40 Year
  Sex: Female
  Weight: 124 kg

DRUGS (6)
  1. CLOZARIL [Suspect]
     Indication: SCHIZOPHRENIA
     Dosage: 300 mg, daily
     Route: 048
  2. CLOZARIL [Suspect]
     Dosage: 225 mg, UNK
     Dates: start: 20120521
  3. ABILIFY [Concomitant]
     Dosage: 15 mg, QD (mane)
     Route: 048
  4. FLUOXETINE [Concomitant]
     Indication: DEPRESSION
     Dosage: 20 mg, QD
  5. OMEPRAZOLE [Concomitant]
     Indication: GASTROOESOPHAGEAL REFLUX DISEASE
     Dosage: 40 mg, UNK
  6. ARIPIPRAZOLE [Concomitant]
     Indication: SCHIZOPHRENIA
     Dosage: 15 mg, UNK

REACTIONS (4)
  - Drug abuse [Recovered/Resolved]
  - Hypotension [Recovered/Resolved]
  - Sedation [Recovered/Resolved]
  - Thrombocytopenia [Not Recovered/Not Resolved]
